FAERS Safety Report 14669599 (Version 2)
Quarter: 2018Q2

REPORT INFORMATION
  Report Type: Spontaneous
  Country: BR (occurrence: BR)
  Receive Date: 20180322
  Receipt Date: 20180405
  Transmission Date: 20180711
  Serious: Yes (Other)
  Sender: FDA-Public Use
  Company Number: BR-GLAXOSMITHKLINE-BR2018GSK045691

PATIENT
  Sex: Male
  Weight: 13 kg

DRUGS (2)
  1. CEFTRIAXONE. [Suspect]
     Active Substance: CEFTRIAXONE
     Indication: PRODUCT USED FOR UNKNOWN INDICATION
     Dosage: UNK
  2. ZINNAT [Suspect]
     Active Substance: CEFUROXIME AXETIL
     Indication: PRODUCT USED FOR UNKNOWN INDICATION
     Dosage: 30 MG/KG, QD
     Dates: end: 20180310

REACTIONS (10)
  - Diarrhoea [Recovered/Resolved]
  - Pain [Recovered/Resolved]
  - Haematochezia [Recovered/Resolved]
  - Gastritis [Recovered/Resolved]
  - Colitis [Recovered/Resolved]
  - Mucous stools [Unknown]
  - Hypophagia [Recovered/Resolved]
  - Vomiting [Recovered/Resolved]
  - Abdominal pain upper [Recovered/Resolved]
  - Decreased appetite [Recovered/Resolved]
